FAERS Safety Report 8605805-9 (Version None)
Quarter: 2012Q3

REPORT INFORMATION
  Report Type: 
  Country: None (occurrence: None)
  Receive Date: 20120820
  Receipt Date: 20120807
  Transmission Date: 20120928
  Serious: Yes (Hospitalization)
  Sender: FDA-Public Use
  Company Number: US-GLAXOSMITHKLINE-A0893051A

PATIENT
  Age: 57 Year
  Sex: Male
  Weight: 98.2 kg

DRUGS (10)
  1. LIPITOR [Concomitant]
  2. GLIPIZIDE [Concomitant]
  3. ASPIRIN [Concomitant]
  4. LOPRESSOR [Concomitant]
  5. RESTORIL [Concomitant]
  6. ALBUTEROL [Concomitant]
  7. ROSIGLITAZONE MALEATE [Suspect]
     Indication: DIABETES MELLITUS
     Dosage: 4MG TWICE PER DAY
     Route: 048
     Dates: start: 19990907, end: 20060801
  8. PRINIVIL [Concomitant]
  9. LASIX [Concomitant]
  10. BIAXIN [Concomitant]

REACTIONS (8)
  - SYNCOPE [None]
  - PAIN [None]
  - CORONARY ARTERY DISEASE [None]
  - ATRIAL FIBRILLATION [None]
  - ARRHYTHMIA [None]
  - MYOCARDIAL INFARCTION [None]
  - CARDIAC FAILURE CONGESTIVE [None]
  - CORONARY ARTERY BYPASS [None]
